FAERS Safety Report 4586718-9 (Version None)
Quarter: 2005Q1

REPORT INFORMATION
  Report Type: 
  Country: None (occurrence: None)
  Receive Date: 20050214
  Receipt Date: 20050203
  Transmission Date: 20050727
  Serious: Yes (Hospitalization, Other)
  Sender: FDA-Public Use
  Company Number: 2005025147

PATIENT
  Age: 50 Year
  Sex: Female

DRUGS (4)
  1. GABAPENTIN [Suspect]
     Indication: NEUROPATHIC PAIN
     Dosage: 1200 MG (1 D), ORAL
     Route: 048
     Dates: start: 20040101
  2. AMITRIPTYLINE HYDROCHLORIDE [Suspect]
     Indication: ILL-DEFINED DISORDER
     Dates: end: 20050101
  3. FENTANYL [Concomitant]
  4. CLONAZEPAM [Concomitant]

REACTIONS (4)
  - ANTI-HBC ANTIBODY POSITIVE [None]
  - CHOLESTASIS [None]
  - PROTHROMBIN TIME PROLONGED [None]
  - SOMNOLENCE [None]
